FAERS Safety Report 5596195-7 (Version None)
Quarter: 2008Q1

REPORT INFORMATION
  Report Type: 
  Country: None (occurrence: None)
  Receive Date: 20080118
  Receipt Date: 20080114
  Transmission Date: 20080703
  Serious: Yes (Other)
  Sender: FDA-Public Use
  Company Number: US-GILEAD-2008-0014947

PATIENT
  Sex: Female
  Weight: 66.284 kg

DRUGS (10)
  1. LETAIRIS [Suspect]
     Indication: PULMONARY HYPERTENSION
     Route: 048
     Dates: start: 20071002
  2. HYDREA [Concomitant]
     Indication: PULMONARY HYPERTENSION
     Route: 048
  3. SILDENAFIL CITRATE [Concomitant]
     Indication: PULMONARY HYPERTENSION
     Route: 048
  4. ALLOPURINOL [Concomitant]
     Indication: GOUT
     Route: 048
  5. SODIUM BICARBONATE [Concomitant]
     Indication: GASTROOESOPHAGEAL REFLUX DISEASE
     Route: 048
  6. FOLIC ACID [Concomitant]
     Indication: VITAMIN SUPPLEMENTATION
     Route: 048
  7. NEXIUM [Concomitant]
     Indication: GASTROOESOPHAGEAL REFLUX DISEASE
     Route: 048
  8. AMBIEN [Concomitant]
     Indication: INSOMNIA
     Route: 048
  9. TYLOX [Concomitant]
     Indication: PAIN
     Dosage: 5MG OXYCODONE/500 MG ACETAMINOPHEN AS NEEDED
     Route: 048
  10. MOBIC [Concomitant]
     Indication: PAIN
     Route: 048

REACTIONS (4)
  - HAEMOGLOBIN DECREASED [None]
  - HEADACHE [None]
  - HOT FLUSH [None]
  - OEDEMA PERIPHERAL [None]
